FAERS Safety Report 8495935-7 (Version None)
Quarter: 2012Q3

REPORT INFORMATION
  Report Type: 
  Country: None (occurrence: None)
  Receive Date: 20120709
  Receipt Date: 20120703
  Transmission Date: 20120928
  Serious: Yes (Other)
  Sender: FDA-Public Use
  Company Number: US-GLAXOSMITHKLINE-A0966055A

PATIENT
  Age: 48 Year
  Sex: Female

DRUGS (4)
  1. IBUPROFEN [Concomitant]
  2. ADVAIR DISKUS 100/50 [Suspect]
     Indication: ASTHMA
     Dosage: 1PUFF TWICE PER DAY
     Route: 055
     Dates: start: 20101106
  3. PRILOSEC [Concomitant]
  4. ALBUTEROL [Concomitant]

REACTIONS (5)
  - PRODUCT QUALITY ISSUE [None]
  - ASTHMA [None]
  - DYSPNOEA [None]
  - ADVERSE DRUG REACTION [None]
  - DRUG INEFFECTIVE [None]
